FAERS Safety Report 9715604 (Version 1)
Quarter: 2013Q4

REPORT INFORMATION
  Report Type: Spontaneous
  Country: US (occurrence: US)
  Receive Date: 20131127
  Receipt Date: 20131127
  Transmission Date: 20140711
  Serious: Yes (Hospitalization, Other)
  Sender: FDA-Public Use
  Company Number: US-AMGEN-USASP2013083311

PATIENT
  Age: 54 Year
  Sex: Male

DRUGS (1)
  1. ENBREL [Suspect]
     Indication: PRODUCT USED FOR UNKNOWN INDICATION
     Dosage: UNK
     Route: 065
     Dates: end: 201305

REACTIONS (4)
  - Spinal compression fracture [Recovered/Resolved]
  - Thoracic vertebral fracture [Recovered/Resolved]
  - Osteogenesis imperfecta [Not Recovered/Not Resolved]
  - Fall [Recovered/Resolved]
